FAERS Safety Report 25775800 (Version 2)
Quarter: 2025Q4

REPORT INFORMATION
  Report Type: Spontaneous
  Country: US (occurrence: US)
  Receive Date: 20250909
  Receipt Date: 20251016
  Transmission Date: 20260117
  Serious: Yes (Death, Other)
  Sender: LUPIN
  Company Number: US-LUPIN PHARMACEUTICALS INC.-2025-07891

PATIENT
  Age: 79 Year
  Weight: 110.2 kg

DRUGS (1)
  1. ALBUTEROL SULFATE [Suspect]
     Active Substance: ALBUTEROL SULFATE
     Indication: Chronic obstructive pulmonary disease
     Dosage: 2 PUFFS EVERY 6 HOURS AS NEEDED.

REACTIONS (4)
  - Death [Fatal]
  - Device issue [Unknown]
  - Off label use [Unknown]
  - Product substitution issue [Unknown]
